FAERS Safety Report 4470206-4 (Version None)
Quarter: 2004Q4

REPORT INFORMATION
  Report Type: 
  Country: None (occurrence: None)
  Receive Date: 20041008
  Receipt Date: 20041001
  Transmission Date: 20050328
  Serious: Yes (Hospitalization)
  Sender: FDA-Public Use
  Company Number: JP-MERCK-0410USA00813

PATIENT
  Age: 6 Year
  Sex: Male

DRUGS (5)
  1. LEBENIN [Concomitant]
     Route: 048
     Dates: start: 20040927
  2. MUCODYNE [Concomitant]
     Route: 048
     Dates: start: 20040927
  3. MEIACT [Concomitant]
     Route: 048
     Dates: start: 20040927
  4. PERIACTIN [Suspect]
     Route: 048
     Dates: start: 20040927
  5. ASVERIN [Concomitant]
     Route: 048
     Dates: start: 20040927

REACTIONS (1)
  - FALL [None]
